FAERS Safety Report 9232725 (Version 1)
Quarter: 2013Q1

REPORT INFORMATION
  Report Type: Spontaneous
  Country: US (occurrence: None)
  Receive Date: 20121031
  Receipt Date: 20121031
  Transmission Date: 20140127
  Serious: No
  Sender: FDA-Public Use
  Company Number: PHEH2012US013146

PATIENT
  Age: 59 Year
  Sex: Female

DRUGS (3)
  1. GILENYA (FTY) CAPSULE [Suspect]
     Indication: MULTIPLE SCLEROSIS
     Route: 048
     Dates: start: 201205
  2. ANTIDEPRESSANTS (NO INGREDIENTS/SUBSTANCES) [Concomitant]
  3. FAMPRIDINE (FAMPRIDINE) [Concomitant]

REACTIONS (2)
  - Chromaturia [None]
  - Oedema peripheral [None]
